FAERS Safety Report 7372164-1 (Version None)
Quarter: 2011Q1

REPORT INFORMATION
  Report Type: 
  Country: None (occurrence: None)
  Receive Date: 20110324
  Receipt Date: 20110308
  Transmission Date: 20110831
  Serious: Yes (Hospitalization)
  Sender: FDA-Public Use
  Company Number: US-JNJFOC-20060304590

PATIENT
  Sex: Male
  Weight: 32 kg

DRUGS (5)
  1. ENTERAL NUTRITION [Concomitant]
  2. INFLIXIMAB [Suspect]
     Dosage: TOTAL 3 DOSES
     Route: 042
  3. INFLIXIMAB [Suspect]
     Route: 042
  4. AZATHIOPRINE [Concomitant]
  5. INFLIXIMAB [Suspect]
     Indication: INFLAMMATORY BOWEL DISEASE
     Route: 042

REACTIONS (2)
  - INFUSION RELATED REACTION [None]
  - CROHN'S DISEASE [None]
